FAERS Safety Report 7300954-X (Version None)
Quarter: 2011Q1

REPORT INFORMATION
  Report Type: 
  Country: None (occurrence: None)
  Receive Date: 20110110
  Receipt Date: 20101005
  Transmission Date: 20110831
  Serious: Yes (Other)
  Sender: FDA-Public Use
  Company Number: 10-001437

PATIENT
  Age: 36 Year
  Sex: Female
  Weight: 63.5 kg

DRUGS (3)
  1. LOESTRIN 24 FE [Suspect]
     Indication: DYSMENORRHOEA
     Dosage: 20/1000 UG, QD, ORAL
     Route: 048
     Dates: start: 20090715, end: 20100601
  2. ESTROSTEP FE [Suspect]
     Indication: DYSMENORRHOEA
     Dosage: 20/30/35/1000 UG, QD, ORAL
     Route: 048
     Dates: start: 20100822
  3. FEMCON FE [Suspect]
     Indication: DYSMENORRHOEA
     Dates: start: 20100608, end: 20100821

REACTIONS (3)
  - DRUG DISPENSING ERROR [None]
  - TRANSIENT ISCHAEMIC ATTACK [None]
  - MOOD SWINGS [None]
